FAERS Safety Report 4335966-1 (Version None)
Quarter: 2004Q2

REPORT INFORMATION
  Report Type: 
  Country: None (occurrence: None)
  Receive Date: 20040406
  Receipt Date: 20040324
  Transmission Date: 20050107
  Serious: No
  Sender: FDA-Public Use
  Company Number: 04P-062-0254647-00

PATIENT
  Age: 67 Year
  Sex: Male

DRUGS (10)
  1. VALPROATE SODIUM [Suspect]
     Indication: BIPOLAR DISORDER
     Dosage: SEE IMAGE
     Route: 048
     Dates: start: 20031127, end: 20031201
  2. VALPROATE SODIUM [Suspect]
     Indication: BIPOLAR DISORDER
     Dosage: SEE IMAGE
     Route: 048
     Dates: start: 20031201, end: 20031215
  3. VALPROATE SODIUM [Suspect]
     Indication: BIPOLAR DISORDER
     Dosage: SEE IMAGE
     Route: 048
     Dates: start: 20031216, end: 20040128
  4. VALPROATE SODIUM [Suspect]
     Indication: BIPOLAR DISORDER
     Dosage: SEE IMAGE
     Route: 048
     Dates: start: 20040129, end: 20040215
  5. VALPROATE SODIUM [Suspect]
     Indication: BIPOLAR DISORDER
     Dosage: SEE IMAGE
     Route: 048
     Dates: start: 20040216, end: 20040224
  6. VALPROATE SODIUM [Suspect]
     Indication: BIPOLAR DISORDER
     Dosage: SEE IMAGE
     Route: 048
     Dates: start: 20040225
  7. ORFIRIL (VALPROATE SODIUM) (VALPROATE SODIUM) [Suspect]
  8. PAROXETINE HCL [Concomitant]
  9. OLANZAPINE [Concomitant]
  10. LORAZEPAM [Concomitant]

REACTIONS (3)
  - BLOOD AMYLASE INCREASED [None]
  - BLOOD CREATINE PHOSPHOKINASE INCREASED [None]
  - LIPASE INCREASED [None]
